FAERS Safety Report 8891687 (Version 1)
Quarter: 2012Q4

REPORT INFORMATION
  Report Type: 
  Country: US (occurrence: US)
  Receive Date: 20121107
  Receipt Date: 20121107
  Transmission Date: 20130627
  Serious: No
  Sender: FDA-Public Use
  Company Number: US-AMGEN-USASP2011056156

PATIENT
  Sex: Female
  Weight: 75 kg

DRUGS (10)
  1. ENBREL [Suspect]
     Indication: PRODUCT USED FOR UNKNOWN INDICATION
     Dosage: 50 mg, qwk
  2. METHOTREXATE [Concomitant]
     Dosage: 2.5 mg, UNK
  3. NAPROXEN [Concomitant]
     Dosage: 250 mg, UNK
  4. FOLIC ACID [Concomitant]
     Dosage: 1 mg, UNK
  5. MULTIVITAMIN [Concomitant]
     Dosage: UNK
  6. FISH OIL [Concomitant]
     Dosage: UNK
  7. VITAMIN D [Concomitant]
     Dosage: 10000 IU, UNK
  8. PROBIOTIC [Concomitant]
     Dosage: UNK
  9. GLUCOSAMINE, CHONDROITIN + MSM [Concomitant]
     Dosage: UNK
  10. ERYTHROMYCIN [Concomitant]
     Dosage: UNK

REACTIONS (1)
  - Swelling [Unknown]
